FAERS Safety Report 9554303 (Version 1)
Quarter: 2013Q3

REPORT INFORMATION
  Report Type: Spontaneous
  Country: US (occurrence: US)
  Receive Date: 20130925
  Receipt Date: 20130925
  Transmission Date: 20140515
  Serious: Yes (Other)
  Sender: FDA-Public Use
  Company Number: US-MYLANLABS-2013S1015479

PATIENT
  Sex: Female

DRUGS (8)
  1. ALENDRONATE SODIUM TABLETS USP [Suspect]
     Indication: OSTEOPOROSIS
     Dates: start: 2008, end: 2012
  2. ALENDRONATE SODIUM TABLETS USP [Suspect]
     Indication: OSTEOPENIA
     Dates: start: 2008, end: 2012
  3. ALENDRONATE SODIUM TABLETS USP [Suspect]
     Indication: OSTEOPOROSIS PROPHYLAXIS
     Dates: start: 2008, end: 2012
  4. ALENDRONATE SODIUM TABLETS USP [Suspect]
     Indication: PROPHYLAXIS
     Dates: start: 2008, end: 2012
  5. FOSAMAX [Suspect]
     Indication: OSTEOPOROSIS
     Dates: start: 2001, end: 2008
  6. FOSAMAX [Suspect]
     Indication: OSTEOPENIA
     Dates: start: 2001, end: 2008
  7. FOSAMAX [Suspect]
     Indication: OSTEOPOROSIS PROPHYLAXIS
     Dates: start: 2001, end: 2008
  8. FOSAMAX [Suspect]
     Indication: PROPHYLAXIS
     Dates: start: 2001, end: 2008

REACTIONS (2)
  - Femur fracture [Unknown]
  - Low turnover osteopathy [Unknown]
